FAERS Safety Report 8207518 (Version 5)
Quarter: 2015Q4

REPORT INFORMATION
  Report Type: Report from Study
  Country: US (occurrence: US)
  Receive Date: 20111028
  Receipt Date: 20151113
  Transmission Date: 20160305
  Serious: Yes (Other)
  Sender: FDA-Public Use
  Company Number: US-AMGEN-USASP2011054307

PATIENT
  Age: 39 Year
  Sex: Female

DRUGS (2)
  1. ENBREL [Suspect]
     Active Substance: ETANERCEPT
     Indication: RHEUMATOID ARTHRITIS
     Dosage: 50 MG, QWK
     Route: 065
     Dates: start: 20101001
  2. ENBREL [Suspect]
     Active Substance: ETANERCEPT
     Dosage: 50 MG, QWK
     Route: 058
     Dates: start: 20120403

REACTIONS (8)
  - Gallbladder operation [Unknown]
  - Intracranial pressure increased [Unknown]
  - Limb injury [Unknown]
  - Sinusitis [Unknown]
  - Hordeolum [Not Recovered/Not Resolved]
  - Pain in extremity [Not Recovered/Not Resolved]
  - Ligament operation [Unknown]
  - Arnold-Chiari malformation [Not Recovered/Not Resolved]

NARRATIVE: CASE EVENT DATE: 201109
